FAERS Safety Report 8782223 (Version 1)
Quarter: 2012Q4

REPORT INFORMATION
  Report Type: 
  Country: US (occurrence: US)
  Receive Date: 20120913
  Receipt Date: 20120913
  Transmission Date: 20130627
  Serious: Yes (Other)
  Sender: FDA-Public Use
  Company Number: US-VERTEX PHARMACEUTICAL INC.-2012-020072

PATIENT
  Age: 58 Year
  Sex: Female

DRUGS (5)
  1. VX-950 [Suspect]
     Indication: HEPATITIS C
     Dosage: 750 mg, tid
     Route: 048
     Dates: start: 2012
  2. RIBASPHERE [Suspect]
     Indication: HEPATITIS C
     Dosage: 600 mg, bid
     Route: 048
     Dates: start: 2012
  3. PEGASYS [Concomitant]
     Indication: HEPATITIS C
     Dosage: 180 UNK, UNK
     Route: 058
     Dates: start: 2012
  4. ZYRTEC [Concomitant]
     Dosage: 10 mg, qd
     Route: 048
     Dates: start: 20120612
  5. PROZAC [Concomitant]
     Dosage: 20 mg, qd
     Route: 048
     Dates: start: 20120612

REACTIONS (1)
  - Anaemia [Unknown]
